FAERS Safety Report 19031891 (Version 3)
Quarter: 2021Q3

REPORT INFORMATION
  Report Type: Spontaneous
  Country: US (occurrence: US)
  Receive Date: 20210319
  Receipt Date: 20210728
  Transmission Date: 20211014
  Serious: No
  Sender: FDA-Public Use
  Company Number: US-SA-2021SA089110

PATIENT
  Sex: Female
  Weight: 79.4 kg

DRUGS (1)
  1. CEREZYME [Suspect]
     Active Substance: IMIGLUCERASE
     Indication: GAUCHER^S DISEASE
     Dosage: 4800 MG, QOW
     Route: 042
     Dates: start: 20200924

REACTIONS (3)
  - Weight decreased [Unknown]
  - Weight increased [Unknown]
  - Device malfunction [Unknown]
